FAERS Safety Report 11985632 (Version 4)
Quarter: 2016Q2

REPORT INFORMATION
  Report Type: Report from Study
  Country: BR (occurrence: BR)
  Receive Date: 20160201
  Receipt Date: 20160525
  Transmission Date: 20160815
  Serious: Yes (Hospitalization)
  Sender: FDA-Public Use
  Company Number: BR-BIOGEN-2016BI00183253

PATIENT
  Age: 29 Year
  Sex: Female

DRUGS (2)
  1. AVONEX [Suspect]
     Active Substance: INTERFERON BETA-1A
     Indication: MULTIPLE SCLEROSIS
     Route: 030
     Dates: start: 20121105, end: 201511
  2. COPAXONE [Concomitant]
     Active Substance: GLATIRAMER ACETATE
     Indication: PRODUCT USED FOR UNKNOWN INDICATION
     Route: 065

REACTIONS (8)
  - Hip arthroplasty [Recovered/Resolved]
  - Fatigue [Not Recovered/Not Resolved]
  - Hemiplegia [Recovered/Resolved]
  - Intervertebral disc protrusion [Recovered/Resolved with Sequelae]
  - Intervertebral disc degeneration [Unknown]
  - Vision blurred [Unknown]
  - Central nervous system lesion [Not Recovered/Not Resolved]
  - Multiple sclerosis relapse [Recovered/Resolved with Sequelae]

NARRATIVE: CASE EVENT DATE: 201306
